FAERS Safety Report 25674354 (Version 1)
Quarter: 2025Q3

REPORT INFORMATION
  Report Type: Spontaneous
  Country: CN (occurrence: CN)
  Receive Date: 20250813
  Receipt Date: 20250813
  Transmission Date: 20251020
  Serious: Yes (Other)
  Sender: SANOFI AVENTIS
  Company Number: CN-SA-2025SA236414

PATIENT
  Age: 59 Year
  Sex: Male
  Weight: 70 kg

DRUGS (9)
  1. PLAVIX [Suspect]
     Active Substance: CLOPIDOGREL BISULFATE
     Indication: Symptomatic treatment
     Dosage: 75 MG, QD
     Route: 048
     Dates: start: 20250718, end: 20250723
  2. PLAVIX [Suspect]
     Active Substance: CLOPIDOGREL BISULFATE
     Indication: Cerebral infarction
  3. ESCITALOPRAM OXALATE [Suspect]
     Active Substance: ESCITALOPRAM OXALATE
     Indication: Symptomatic treatment
     Dosage: 5 MG, QD
     Route: 048
     Dates: start: 20250708, end: 20250718
  4. ESCITALOPRAM OXALATE [Suspect]
     Active Substance: ESCITALOPRAM OXALATE
     Indication: Depression
     Dosage: 10 MG, QD
     Route: 048
     Dates: start: 20250718, end: 20250722
  5. QUETIAPINE FUMARATE [Concomitant]
     Active Substance: QUETIAPINE FUMARATE
     Indication: Symptomatic treatment
     Dosage: 0.0125G QD
     Route: 048
     Dates: start: 20250708, end: 20250721
  6. QUETIAPINE FUMARATE [Concomitant]
     Active Substance: QUETIAPINE FUMARATE
     Indication: Depression
  7. ASPIRIN [Concomitant]
     Active Substance: ASPIRIN
     Indication: Cerebral infarction
     Dates: start: 20250708, end: 20250711
  8. CYCLOPHOSPHAMIDE [Concomitant]
     Active Substance: CYCLOPHOSPHAMIDE
     Route: 041
     Dates: start: 20250711
  9. METHYLPREDNISOLONE SODIUM SUCCINATE [Concomitant]
     Active Substance: METHYLPREDNISOLONE SODIUM SUCCINATE
     Indication: Antiinflammatory therapy
     Dates: start: 20250711

REACTIONS (7)
  - Altered state of consciousness [Not Recovered/Not Resolved]
  - Hallucination [Not Recovered/Not Resolved]
  - Neurological symptom [Not Recovered/Not Resolved]
  - Pyrexia [Not Recovered/Not Resolved]
  - Drug level increased [Not Recovered/Not Resolved]
  - Motor dysfunction [Not Recovered/Not Resolved]
  - Autonomic nervous system imbalance [Not Recovered/Not Resolved]

NARRATIVE: CASE EVENT DATE: 20250718
